FAERS Safety Report 10381991 (Version 1)
Quarter: 2014Q1

REPORT INFORMATION
  Report Type: Spontaneous
  Country: US (occurrence: None)
  Receive Date: 20140306
  Receipt Date: 20140306
  Transmission Date: 20141002
  Serious: Yes (Other)
  Sender: FDA-Public Use
  Company Number: 163-21880-13090714

PATIENT
  Age: 63 Year
  Sex: Female

DRUGS (17)
  1. REVLIMID [Suspect]
     Indication: PLASMA CELL MYELOMA
     Route: 048
     Dates: start: 20130301, end: 201307
  2. OMEPRAZOLE (OMEPRAZOLE) [Concomitant]
  3. ONDANSENTRON HCL (ONDANSETRON HYDROCHLORIDE) [Concomitant]
  4. METOPROLOL TARTRATE (METOPROLOL TARTRATE) [Concomitant]
  5. HYDROCODONE/ACETAMINOPHEN (REMEDEINE) [Concomitant]
  6. MEDROXYPROGESTERONE (MEDROXYPROGESTERONE) [Concomitant]
  7. ESTRADIOL (ESTRADIOL) [Concomitant]
  8. WARFARIN (WARFARIN) [Concomitant]
  9. METOPROLOL (METOPROLOL) [Concomitant]
  10. FLUTICASONE  (FLUTICASONE) [Concomitant]
  11. FINASTERIDE (FINASTERIDE) [Concomitant]
  12. TRAZODONE (TRAZODONE) [Concomitant]
  13. TAMSULOSIN HCL (TAMSULOSIN HYDROCHLORIDE) [Concomitant]
  14. DIGOXIN (DIGOXIN) [Concomitant]
  15. B COMPLEX (BECOSYM FORTE) [Concomitant]
  16. CHOLECALCIFEROL (COLECALCIFEROL) [Concomitant]
  17. INFLUENZA (INFLUENZA VACCINE) [Concomitant]

REACTIONS (3)
  - Neutrophil count decreased [None]
  - Platelet count decreased [None]
  - Haemoglobin decreased [None]
